FAERS Safety Report 6592975-X (Version None)
Quarter: 2010Q1

REPORT INFORMATION
  Report Type: 
  Country: None (occurrence: None)
  Receive Date: 20100222
  Receipt Date: 20100214
  Transmission Date: 20100710
  Serious: Yes (Other)
  Sender: FDA-Public Use
  Company Number: IT-BRISTOL-MYERS SQUIBB COMPANY-14968473

PATIENT
  Sex: Female

DRUGS (4)
  1. ERBITUX [Suspect]
     Indication: COLORECTAL CANCER
     Dosage: 250MG
  2. IRINOTECAN HCL [Suspect]
     Indication: COLORECTAL CANCER
  3. FLUOROURACIL [Suspect]
     Indication: COLORECTAL CANCER
  4. FOLINIC ACID [Suspect]
     Indication: COLORECTAL CANCER

REACTIONS (2)
  - GINGIVAL BLEEDING [None]
  - THROMBOCYTOPENIA [None]
